FAERS Safety Report 4829323-9 (Version None)
Quarter: 2005Q4

REPORT INFORMATION
  Report Type: 
  Country: None (occurrence: None)
  Receive Date: 20051115
  Receipt Date: 20051115
  Transmission Date: 20060501
  Serious: Yes (Other)
  Sender: FDA-Public Use
  Company Number: None

PATIENT
  Sex: Male
  Weight: 70.3075 kg

DRUGS (2)
  1. IRESSA [Suspect]
     Indication: PANCREATIC CARCINOMA
     Dosage: 250 MG   QD   PO
     Route: 048
     Dates: start: 20050810, end: 20050815
  2. TAXOTERE [Suspect]
     Indication: PANCREATIC CARCINOMA
     Dosage: 60 MG/M2   Q 3 WEEKS   IV DRIP
     Route: 041
     Dates: start: 20050810, end: 20050810

REACTIONS (7)
  - ASTHENIA [None]
  - EYE PAIN [None]
  - HEADACHE [None]
  - MUSCLE SPASMS [None]
  - PAIN [None]
  - PAIN IN EXTREMITY [None]
  - VISION BLURRED [None]
